FAERS Safety Report 9116947 (Version 1)
Quarter: 2013Q1

REPORT INFORMATION
  Report Type: Spontaneous
  Country: US (occurrence: US)
  Receive Date: 20130225
  Receipt Date: 20130225
  Transmission Date: 20140127
  Serious: Yes (Other)
  Sender: FDA-Public Use
  Company Number: US-PFIZER INC-2013068161

PATIENT
  Age: 48 Year
  Sex: Female
  Weight: 96.15 kg

DRUGS (2)
  1. CHANTIX [Suspect]
     Indication: SMOKING CESSATION THERAPY
     Dosage: 0.5 MG, 1X/DAY
     Route: 048
     Dates: start: 201010, end: 201010
  2. CHANTIX [Suspect]
     Dosage: UNK
     Route: 048
     Dates: start: 201010, end: 201010

REACTIONS (1)
  - Myocardial infarction [Unknown]
